FAERS Safety Report 16851505 (Version 2)
Quarter: 2019Q4

REPORT INFORMATION
  Report Type: Report from Study
  Country: JP (occurrence: JP)
  Receive Date: 20190925
  Receipt Date: 20191118
  Transmission Date: 20200122
  Serious: Yes (Death)
  Sender: FDA-Public Use
  Company Number: JP-JT-EVA201903138KERYXP-001

PATIENT
  Age: 69 Year
  Sex: Male
  Weight: 64.5 kg

DRUGS (18)
  1. CALTAN [Concomitant]
     Active Substance: CALCIUM CARBONATE
     Indication: HYPERPHOSPHATAEMIA
     Dosage: 1500 MILLIGRAM, QD
     Route: 048
  2. NESP [Concomitant]
     Active Substance: DARBEPOETIN ALFA
     Dosage: 120 MICROGRAM, 2 DOSES IN 12 MONTHS
     Route: 065
  3. LASIX [Concomitant]
     Active Substance: FUROSEMIDE
     Dosage: 160 MILLIGRAM, QD
     Route: 048
  4. RIONA [Suspect]
     Active Substance: FERRIC CITRATE ANHYDROUS
     Indication: HYPERPHOSPHATAEMIA
     Dosage: 250 MILLIGRAM, QD
     Route: 048
     Dates: start: 20150918, end: 20170106
  5. NESP [Concomitant]
     Active Substance: DARBEPOETIN ALFA
     Dosage: 40 MICROGRAM, 7 DOSES IN 3 MONTHS
     Route: 065
  6. NESP [Concomitant]
     Active Substance: DARBEPOETIN ALFA
     Dosage: 60 MICROGRAM, 4 DOSES IN 12 MONTHS
     Route: 065
  7. LIVALO [Concomitant]
     Active Substance: PITAVASTATIN CALCIUM
     Dosage: 2 MILLIGRAM, QD
     Route: 048
  8. CARDENALIN [Concomitant]
     Active Substance: DOXAZOSIN MESYLATE
     Dosage: 4 MILLIGRAM, QD
     Route: 048
  9. NESP [Concomitant]
     Active Substance: DARBEPOETIN ALFA
     Indication: NEPHROGENIC ANAEMIA
     Dosage: 120 MICROGRAM, 4 DOSES IN 3 MONTHS
     Route: 065
  10. TAKELDA [Concomitant]
     Active Substance: ASPIRIN\LANSOPRAZOLE
     Indication: HYPERCHLORHYDRIA
     Dosage: UNK
     Route: 048
  11. ATELEC [Concomitant]
     Active Substance: CILNIDIPINE
     Dosage: 20 MILLIGRAM, QD
     Route: 048
  12. NESP [Concomitant]
     Active Substance: DARBEPOETIN ALFA
     Dosage: 60 MICROGRAM, Q3MO
     Route: 065
  13. NESP [Concomitant]
     Active Substance: DARBEPOETIN ALFA
     Dosage: 40 MICROGRAM, Q12MO
     Route: 065
  14. SIGMART [Concomitant]
     Active Substance: NICORANDIL
     Dosage: 15 MILLIGRAM, QD
     Route: 048
  15. NESP [Concomitant]
     Active Substance: DARBEPOETIN ALFA
     Dosage: 40 MICROGRAM, Q3MO
     Route: 065
  16. NESP [Concomitant]
     Active Substance: DARBEPOETIN ALFA
     Dosage: 30 MICROGRAM, 12 DOSES IN 6 MONTHS
     Route: 065
  17. ADALAT CRONO [Concomitant]
     Active Substance: NIFEDIPINE
     Dosage: 80 MILLIGRAM, QD
     Route: 048
  18. ARTIST [Concomitant]
     Active Substance: CARVEDILOL
     Dosage: 5 MILLIGRAM, QD
     Route: 048

REACTIONS (1)
  - Death [Fatal]

NARRATIVE: CASE EVENT DATE: 201701
